FAERS Safety Report 17941437 (Version 1)
Quarter: 2020Q2

REPORT INFORMATION
  Report Type: Spontaneous
  Country: US (occurrence: US)
  Receive Date: 20200624
  Receipt Date: 20200624
  Transmission Date: 20200714
  Serious: Yes (Other)
  Sender: FDA-Public Use
  Company Number: US-PURDUE-CAN-2020-0011201

PATIENT
  Age: 47 Year
  Sex: Male

DRUGS (2)
  1. VALPROIC ACID. [Concomitant]
     Active Substance: VALPROIC ACID
     Indication: AFFECT LABILITY
  2. NON-PMN METHYLPHENIDATE HYDROCHLORIDE [Suspect]
     Active Substance: METHYLPHENIDATE HYDROCHLORIDE
     Indication: ATTENTION DEFICIT HYPERACTIVITY DISORDER
     Dosage: 5 MG, BID
     Route: 065

REACTIONS (7)
  - Restlessness [Unknown]
  - Anxiety [Recovering/Resolving]
  - Confabulation [Recovering/Resolving]
  - Mood swings [Recovering/Resolving]
  - Attention deficit hyperactivity disorder [Recovering/Resolving]
  - Fall [Unknown]
  - Agitation [Recovering/Resolving]
